FAERS Safety Report 5171354-6 (Version None)
Quarter: 2006Q4

REPORT INFORMATION
  Report Type: 
  Country: None (occurrence: None)
  Receive Date: 20061213
  Receipt Date: 20061101
  Transmission Date: 20070319
  Serious: Yes (Hospitalization)
  Sender: FDA-Public Use
  Company Number: US-AMGEN-STX198891

PATIENT
  Sex: Female
  Weight: 112.1 kg

DRUGS (4)
  1. ENBREL [Suspect]
     Indication: PSORIATIC ARTHROPATHY
     Route: 058
     Dates: start: 20041201, end: 20061101
  2. METHOTREXATE [Suspect]
     Dates: start: 20050401
  3. PREDNISONE TAB [Suspect]
  4. COUMADIN [Concomitant]

REACTIONS (2)
  - CELLULITIS [None]
  - INJECTION SITE PAIN [None]
